FAERS Safety Report 8815708 (Version 1)
Quarter: 2012Q4

REPORT INFORMATION
  Report Type: Report from Study
  Country: US (occurrence: US)
  Receive Date: 20120928
  Receipt Date: 20120928
  Transmission Date: 20130627
  Serious: Yes (Hospitalization)
  Sender: FDA-Public Use
  Company Number: US-ABBOTT-12P-163-0984108-00

PATIENT
  Age: 65 Year
  Sex: Female

DRUGS (2)
  1. HUMIRA [Suspect]
     Indication: CROHN^S DISEASE
     Dates: start: 20120803, end: 20120803
  2. HUMIRA [Suspect]
     Dates: start: 20120919

REACTIONS (2)
  - Hiatus hernia [Recovered/Resolved]
  - Injection site pain [Not Recovered/Not Resolved]
